FAERS Safety Report 6373031-2 (Version None)
Quarter: 2009Q3

REPORT INFORMATION
  Report Type: 
  Country: None (occurrence: None)
  Receive Date: 20090924
  Receipt Date: 20090720
  Transmission Date: 20100115
  Serious: No
  Sender: FDA-Public Use
  Company Number: US-ASTRAZENECA-2009SE05384

PATIENT
  Sex: Female
  Weight: 78.5 kg

DRUGS (6)
  1. SEROQUEL [Suspect]
     Route: 048
     Dates: start: 20090713
  2. COUMADIN [Concomitant]
     Route: 048
  3. SIMVASTATIN [Concomitant]
     Route: 048
  4. LORAZEPAM [Concomitant]
     Route: 048
  5. LITHIUM [Concomitant]
     Route: 048
  6. ATENOLOL [Concomitant]
     Route: 048

REACTIONS (2)
  - URINE COLOUR ABNORMAL [None]
  - URINE ODOUR ABNORMAL [None]
